FAERS Safety Report 10062881 (Version 1)
Quarter: 2014Q1

REPORT INFORMATION
  Report Type: Spontaneous
  Country: US (occurrence: None)
  Receive Date: 20140328
  Receipt Date: 20140328
  Transmission Date: 20141002
  Serious: No
  Sender: FDA-Public Use
  Company Number: CABO-14004058

PATIENT
  Age: 73 Year
  Sex: Male

DRUGS (4)
  1. COMETRIQ (CABOZANTINIB) CAPSULE [Suspect]
     Indication: PROSTATE CANCER
     Route: 048
     Dates: start: 20140213
  2. PREDNISONE(PREDNISONE) [Concomitant]
  3. METOPROLOL(METOPROLOL) [Concomitant]
  4. PEPCID(FAMOTIDINE) [Concomitant]

REACTIONS (5)
  - Urinary incontinence [None]
  - Fatigue [None]
  - Dysphonia [None]
  - Dysgeusia [None]
  - Off label use [None]
